FAERS Safety Report 20902740 (Version 1)
Quarter: 2022Q2

REPORT INFORMATION
  Report Type: Spontaneous
  Country: DK (occurrence: DK)
  Receive Date: 20220601
  Receipt Date: 20220601
  Transmission Date: 20220721
  Serious: Yes (Hospitalization)
  Sender: FDA-Public Use
  Company Number: DK-NOVARTISPH-NVSC2022DK121673

PATIENT
  Age: 73 Year
  Sex: Female

DRUGS (12)
  1. DEXAMETHASONE [Suspect]
     Active Substance: DEXAMETHASONE
     Indication: Plasma cell myeloma
     Dosage: 20 MG, QW
     Route: 048
     Dates: start: 20200428, end: 20200509
  2. DEXAMETHASONE [Suspect]
     Active Substance: DEXAMETHASONE
     Dosage: 20 MG, QW
     Route: 048
     Dates: start: 20200519, end: 20200530
  3. DEXAMETHASONE [Suspect]
     Active Substance: DEXAMETHASONE
     Dosage: 20 MG, QW
     Route: 048
     Dates: start: 20200609, end: 20200622
  4. DEXAMETHASONE [Suspect]
     Active Substance: DEXAMETHASONE
     Dosage: 20 MG, QW
     Route: 048
     Dates: start: 20200714, end: 20200728
  5. REVLIMID [Suspect]
     Active Substance: LENALIDOMIDE
     Indication: Plasma cell myeloma
     Dosage: 10 MG, QD
     Route: 048
     Dates: start: 20200428, end: 20200509
  6. REVLIMID [Suspect]
     Active Substance: LENALIDOMIDE
     Dosage: 15 MG, QD
     Route: 048
     Dates: start: 20200519, end: 20200530
  7. REVLIMID [Suspect]
     Active Substance: LENALIDOMIDE
     Dosage: 15 MG, QD
     Route: 048
     Dates: start: 20200609, end: 20200622
  8. REVLIMID [Suspect]
     Active Substance: LENALIDOMIDE
     Dosage: 10 MG, QD
     Route: 048
     Dates: start: 20200714, end: 20200728
  9. VELCADE [Suspect]
     Active Substance: BORTEZOMIB
     Indication: Plasma cell myeloma
     Dosage: 2.6 MG, QW
     Route: 058
     Dates: start: 20200428, end: 20200509
  10. VELCADE [Suspect]
     Active Substance: BORTEZOMIB
     Dosage: 2.6 MG, QW
     Route: 058
     Dates: start: 20200519, end: 20200530
  11. VELCADE [Suspect]
     Active Substance: BORTEZOMIB
     Dosage: 2.6 MG, QW ( 0.5 )
     Route: 058
     Dates: start: 20200609, end: 20200622
  12. VELCADE [Suspect]
     Active Substance: BORTEZOMIB
     Dosage: 2.6 MG, QW
     Route: 058
     Dates: start: 20200714, end: 20200728

REACTIONS (4)
  - Hypervolaemia [Recovered/Resolved]
  - Fatigue [Recovered/Resolved with Sequelae]
  - Pruritus [Recovering/Resolving]
  - Nausea [Recovered/Resolved]

NARRATIVE: CASE EVENT DATE: 20200605
